FAERS Safety Report 7352646-9 (Version None)
Quarter: 2011Q1

REPORT INFORMATION
  Report Type: 
  Country: None (occurrence: None)
  Receive Date: 20110301
  Receipt Date: 20100923
  Transmission Date: 20110831
  Serious: Yes (Other)
  Sender: FDA-Public Use
  Company Number: US-JNJFOC-20070202651

PATIENT
  Age: 41 Year
  Sex: Male
  Weight: 88.4514 kg

DRUGS (1)
  1. MOTRIN IB [Suspect]
     Indication: HEADACHE
     Dosage: 400 MG, 1 IN 1 AS NECESSARY, ORAL
     Route: 048
     Dates: start: 20060520, end: 20060615

REACTIONS (3)
  - DYSPNOEA [None]
  - URTICARIA [None]
  - ANGIOEDEMA [None]
